FAERS Safety Report 5314581-7 (Version None)
Quarter: 2007Q2

REPORT INFORMATION
  Report Type: 
  Country: None (occurrence: None)
  Receive Date: 20070502
  Receipt Date: 20070424
  Transmission Date: 20071010
  Serious: Yes (Hospitalization)
  Sender: FDA-Public Use
  Company Number: US-AVENTIS-200713021US

PATIENT
  Age: 70 Year
  Sex: Female

DRUGS (5)
  1. LANTUS [Suspect]
     Dosage: DOSE: 5 VIA SYRINGE
     Dates: end: 20070401
  2. LANTUS [Suspect]
     Dosage: DOSE: 5 VIA CARTRIDGE IN PEN
     Dates: start: 20070401, end: 20070401
  3. LANTUS [Suspect]
     Dosage: DOSE: UNK VIA SYRINGE
     Dates: start: 20070404
  4. OPTICLIK (INSULIN INJECTION PEN) [Suspect]
     Dates: start: 20070402, end: 20070404
  5. GLUCOPHAGE [Concomitant]
     Dosage: DOSE: UNK

REACTIONS (4)
  - BLOOD GLUCOSE DECREASED [None]
  - BLOOD GLUCOSE INCREASED [None]
  - CONVULSION [None]
  - OVERDOSE [None]
